FAERS Safety Report 5225320-2 (Version None)
Quarter: 2007Q1

REPORT INFORMATION
  Report Type: 
  Country: None (occurrence: None)
  Receive Date: 20070131
  Receipt Date: 20070124
  Transmission Date: 20070707
  Serious: Yes (Other)
  Sender: FDA-Public Use
  Company Number: ES-AVENTIS-200710681GDDC

PATIENT
  Sex: Female

DRUGS (2)
  1. RIFINAH [Suspect]
     Indication: PULMONARY TUBERCULOSIS
     Dosage: DOSE: 2 TABLETS
     Route: 048
     Dates: start: 20060101, end: 20060701
  2. PYRAZINAMIDE [Suspect]
     Indication: PULMONARY TUBERCULOSIS
     Route: 048
     Dates: start: 20060101, end: 20060301

REACTIONS (2)
  - ANTINUCLEAR ANTIBODY POSITIVE [None]
  - PANNICULITIS [None]
